FAERS Safety Report 23476271 (Version 1)
Quarter: 2024Q1

REPORT INFORMATION
  Report Type: Report from Study
  Country: US (occurrence: US)
  Receive Date: 20240204
  Receipt Date: 20240204
  Transmission Date: 20240409
  Serious: No
  Sender: FDA-Public Use
  Company Number: US-EXELIXIS-CABO-23062656

PATIENT
  Sex: Male

DRUGS (1)
  1. CABOMETYX [Suspect]
     Active Substance: CABOZANTINIB S-MALATE
     Indication: Lung neoplasm malignant
     Dosage: 40 MG, QD
     Route: 048
     Dates: start: 202302

REACTIONS (6)
  - Skin disorder [Unknown]
  - Diarrhoea [Unknown]
  - Stomatitis [Unknown]
  - Fatigue [Unknown]
  - Pain in extremity [Unknown]
  - Off label use [Unknown]
